FAERS Safety Report 21826964 (Version 2)
Quarter: 2025Q3

REPORT INFORMATION
  Report Type: Spontaneous
  Country: EU (occurrence: EU)
  Receive Date: 20230106
  Receipt Date: 20250804
  Transmission Date: 20251021
  Serious: Yes (Hospitalization, Other)
  Sender: AUROBINDO
  Company Number: EU-EMA-DD-20221128-7180171-120405

PATIENT
  Age: 45 Year
  Sex: Male

DRUGS (5)
  1. CELECOXIB [Suspect]
     Active Substance: CELECOXIB
     Indication: Spinal osteoarthritis
     Dosage: 200 MILLIGRAM, ONCE A DAY
     Route: 065
  2. ETORICOXIB [Suspect]
     Active Substance: ETORICOXIB
     Indication: Spinal osteoarthritis
     Dosage: 90 MILLIGRAM, ONCE A DAY
     Route: 065
  3. SIMPONI [Suspect]
     Active Substance: GOLIMUMAB
     Indication: Spinal osteoarthritis
     Route: 065
  4. SIMPONI [Suspect]
     Active Substance: GOLIMUMAB
     Indication: Axial spondyloarthritis
  5. PREDNISOLONE [Concomitant]
     Active Substance: PREDNISOLONE
     Indication: Product used for unknown indication
     Route: 048

REACTIONS (7)
  - Renal impairment [Recovered/Resolved]
  - Asthenia [Recovered/Resolved with Sequelae]
  - Tubulointerstitial nephritis [Recovered/Resolved with Sequelae]
  - Blood immunoglobulin M increased [Recovered/Resolved]
  - Proteinuria [Recovered/Resolved]
  - Chronic kidney disease [Recovering/Resolving]
  - Primary biliary cholangitis [Unknown]
